FAERS Safety Report 6776278-6 (Version None)
Quarter: 2010Q2

REPORT INFORMATION
  Report Type: 
  Country: None (occurrence: None)
  Receive Date: 20100615
  Receipt Date: 20100609
  Transmission Date: 20101027
  Serious: Yes (Other)
  Sender: FDA-Public Use
  Company Number: 2010SP029477

PATIENT
  Age: 38 Year
  Sex: Female
  Weight: 69.8539 kg

DRUGS (2)
  1. CLARITIN [Suspect]
     Indication: LIP SWELLING
     Dosage: 10 MG; ONCE; PO
     Route: 048
     Dates: start: 20100525
  2. CLARITIN [Suspect]
     Indication: SEASONAL ALLERGY
     Dosage: 10 MG; ONCE; PO
     Route: 048
     Dates: start: 20100525

REACTIONS (2)
  - DRUG HYPERSENSITIVITY [None]
  - PHARYNGEAL OEDEMA [None]
